FAERS Safety Report 5446215-5 (Version None)
Quarter: 2007Q3

REPORT INFORMATION
  Report Type: 
  Country: None (occurrence: None)
  Receive Date: 20070731
  Receipt Date: 20070319
  Transmission Date: 20080115
  Serious: Yes (Life-Threatening, Hospitalization, Other)
  Sender: FDA-Public Use
  Company Number: US-2007-001074

PATIENT
  Age: 69 Year
  Sex: Female

DRUGS (1)
  1. MAGNEVIST INJECTION(GADOPENTETATE DIMEGLUMINE) INJECTION [Suspect]
     Indication: NUCLEAR MAGNETIC RESONANCE IMAGING
     Dosage: 13 ML, 1 DOSE, INTRAVENOUS
     Route: 042
     Dates: start: 20070109, end: 20070109

REACTIONS (20)
  - BLOOD PRESSURE DECREASED [None]
  - BREATH SOUNDS ABNORMAL [None]
  - DEPRESSED LEVEL OF CONSCIOUSNESS [None]
  - DISORIENTATION [None]
  - DYSARTHRIA [None]
  - ERYTHEMA [None]
  - FEELING ABNORMAL [None]
  - FLUSHING [None]
  - HYPERHIDROSIS [None]
  - HYPERSENSITIVITY [None]
  - HYPOVENTILATION [None]
  - LETHARGY [None]
  - MALAISE [None]
  - NAUSEA [None]
  - OXYGEN SATURATION DECREASED [None]
  - RESPIRATORY DISTRESS [None]
  - SINUS TACHYCARDIA [None]
  - SPEECH DISORDER [None]
  - URINARY INCONTINENCE [None]
  - VOMITING [None]
